FAERS Safety Report 16756746 (Version 2)
Quarter: 2019Q3

REPORT INFORMATION
  Report Type: Spontaneous
  Country: US (occurrence: US)
  Receive Date: 20190829
  Receipt Date: 20190926
  Transmission Date: 20191005
  Serious: Yes (Other)
  Sender: FDA-Public Use
  Company Number: US-SHIRE-US201927870

PATIENT
  Sex: Male

DRUGS (1)
  1. NATPARA (PARATHYROID HORMONE) [Suspect]
     Active Substance: PARATHYROID HORMONE
     Indication: HYPOPARATHYROIDISM
     Dosage: 50 MICROGRAM, 1X/DAY:QD
     Route: 058
     Dates: start: 20190820

REACTIONS (2)
  - Condition aggravated [Unknown]
  - Nephrolithiasis [Recovering/Resolving]
